FAERS Safety Report 14679988 (Version 1)
Quarter: 2018Q1

REPORT INFORMATION
  Report Type: Spontaneous
  Country: US (occurrence: US)
  Receive Date: 20180325
  Receipt Date: 20180325
  Transmission Date: 20180509
  Serious: No
  Sender: FDA-Public Use
  Company Number: None

PATIENT
  Age: 9 Year
  Sex: Male

DRUGS (1)
  1. CEFDINIR. [Suspect]
     Active Substance: CEFDINIR
     Indication: EAR INFECTION
     Route: 048
     Dates: start: 20180320, end: 20180325

REACTIONS (2)
  - Infection [None]
  - Pathogen resistance [None]

NARRATIVE: CASE EVENT DATE: 20180325
